FAERS Safety Report 4851753-X (Version None)
Quarter: 2005Q4

REPORT INFORMATION
  Report Type: 
  Country: None (occurrence: None)
  Receive Date: 20051209
  Receipt Date: 20051206
  Transmission Date: 20060501
  Serious: Yes (Death)
  Sender: FDA-Public Use
  Company Number: S05-SWE-03395-01

PATIENT
  Age: 70 Year
  Sex: Female

DRUGS (16)
  1. MEMANTINE HCL [Suspect]
     Indication: DEMENTIA ALZHEIMER'S TYPE
     Dosage: 10 MG QD; PO
     Route: 048
     Dates: start: 20041013, end: 20050519
  2. MOVICOL [Concomitant]
  3. TOPIMAX (TOPIRAMATE) [Concomitant]
  4. MIRTAZAPINE [Concomitant]
  5. ACETAMINOPHEN [Concomitant]
  6. STESOLID (DIAZEPAM) [Concomitant]
  7. PROGYNON (ESTRADIOL VALERATE) [Concomitant]
  8. LAXOBERAL [Concomitant]
  9. NOVALUZID [Concomitant]
  10. CITALOPRAM HYDROBROMIDE [Concomitant]
  11. ZYPREXA [Concomitant]
  12. ZOPICLONE [Concomitant]
  13. TENORMIN [Concomitant]
  14. XERODENT [Concomitant]
  15. PANTOPRAZOLE [Concomitant]
  16. TAVEGYL (CLEMASTINE) [Concomitant]

REACTIONS (8)
  - AORTIC ARTERIOSCLEROSIS [None]
  - CARDIOMEGALY [None]
  - CIRCULATORY COLLAPSE [None]
  - FATIGUE [None]
  - OEDEMA PERIPHERAL [None]
  - PULMONARY CONGESTION [None]
  - PULMONARY OEDEMA [None]
  - SHOCK [None]
